FAERS Safety Report 7814379-1 (Version None)
Quarter: 2011Q4

REPORT INFORMATION
  Report Type: 
  Country: None (occurrence: None)
  Receive Date: 20111014
  Receipt Date: 20111011
  Transmission Date: 20120403
  Serious: Yes (Other)
  Sender: FDA-Public Use
  Company Number: DE-BAYER-2011-094018

PATIENT
  Age: 43 Year
  Sex: Female
  Weight: 51 kg

DRUGS (1)
  1. BETASERON [Suspect]
     Indication: MULTIPLE SCLEROSIS
     Dosage: DAILY DOSE 250 ?G
     Route: 058
     Dates: start: 20070401

REACTIONS (6)
  - INJECTION SITE INFLAMMATION [None]
  - INJECTION SITE SCAB [None]
  - ERYTHEMA [None]
  - ABSCESS [None]
  - SWELLING [None]
  - IMPAIRED HEALING [None]
